FAERS Safety Report 5705230-4 (Version None)
Quarter: 2008Q2

REPORT INFORMATION
  Report Type: 
  Country: None (occurrence: None)
  Receive Date: 20080410
  Receipt Date: 20010709
  Transmission Date: 20081010
  Serious: Yes (Other)
  Sender: FDA-Public Use
  Company Number: 2008008310

PATIENT
  Age: 55 Year
  Sex: Male
  Weight: 80 kg

DRUGS (1)
  1. BENADRYL [Suspect]
     Indication: RHINITIS ALLERGIC
     Dosage: 6 MG OD DAILY, ORAL
     Route: 048
     Dates: start: 20010630, end: 20010630

REACTIONS (4)
  - DYSPHAGIA [None]
  - PAIN [None]
  - PHARYNGOLARYNGEAL PAIN [None]
  - SOMNOLENCE [None]
